FAERS Safety Report 24074636 (Version 1)
Quarter: 2024Q3

REPORT INFORMATION
  Report Type: Spontaneous
  Country: US (occurrence: US)
  Receive Date: 20240710
  Receipt Date: 20240710
  Transmission Date: 20241016
  Serious: No
  Sender: NOVARTIS
  Company Number: US-002147023-NVSC2024US142712

PATIENT
  Age: 60 Year
  Sex: Female

DRUGS (1)
  1. LEQVIO [Suspect]
     Active Substance: INCLISIRAN SODIUM
     Indication: Low density lipoprotein increased
     Dosage: 284 MG (DOSE DAY 1, 3 MOS, EVERY 6 MOS FROM THERE (284MG)
     Route: 058
     Dates: start: 202404, end: 202406

REACTIONS (1)
  - Low density lipoprotein increased [Unknown]
